FAERS Safety Report 25191968 (Version 2)
Quarter: 2025Q2

REPORT INFORMATION
  Report Type: Spontaneous
  Country: JP (occurrence: JP)
  Receive Date: 20250414
  Receipt Date: 20250523
  Transmission Date: 20250716
  Serious: Yes (Other)
  Sender: AMGEN
  Company Number: JP-AMGEN-JPNSP2025069304

PATIENT
  Age: 86 Year
  Sex: Female

DRUGS (1)
  1. EVENITY [Suspect]
     Active Substance: ROMOSOZUMAB-AQQG
     Indication: Product used for unknown indication
     Route: 058
     Dates: start: 202404

REACTIONS (1)
  - Lumbar spinal stenosis [Unknown]

NARRATIVE: CASE EVENT DATE: 20240601
